FAERS Safety Report 10010954 (Version 1)
Quarter: 2014Q1

REPORT INFORMATION
  Report Type: Spontaneous
  Country: IT (occurrence: None)
  Receive Date: 20140311
  Receipt Date: 20140311
  Transmission Date: 20141002
  Serious: Yes (Life-Threatening)
  Sender: FDA-Public Use
  Company Number: FK201400737

PATIENT
  Age: 60 Year
  Sex: Male

DRUGS (5)
  1. PROPOFOL (MANUFACTURER UNKNOWN) (PROPOFOL) (PROPOFOL) [Suspect]
     Indication: INDUCTION OF ANAESTHESIA
     Dosage: 1 IN 1 D (NOT OTHERWISE SPECIFIED)
     Route: 042
     Dates: start: 20130719, end: 20130719
  2. CISATRACURIUM [Suspect]
     Dosage: 1 IN 1 D (NOT OTHEWISE SPECIFIED)
     Route: 042
     Dates: start: 20130719, end: 20130719
  3. CEFAZOLIN [Suspect]
     Indication: PROPHYLAXIS
     Dosage: 1 IN 1 D (NOT OTHERWISE SPECIFIED)
     Route: 042
     Dates: start: 20130719, end: 20130719
  4. REMIFENTANIL HYDROCHLORIDE [Suspect]
     Indication: INDUCTION OF ANAESTHESIA
     Dosage: 1 IN 1 D (NOT OTHERWISE SPECIFIED)
     Route: 042
     Dates: start: 20130719, end: 20130719
  5. REMIFENTANIL HYDROCHLORIDE [Suspect]
     Indication: MAINTENANCE OF ANAESTHESIA
     Dosage: 1 IN 1 D (NOT OTHERWISE SPECIFIED)
     Route: 042
     Dates: start: 20130719, end: 20130719

REACTIONS (1)
  - Anaphylactic shock [None]
